FAERS Safety Report 4643488-3 (Version None)
Quarter: 2005Q2

REPORT INFORMATION
  Report Type: 
  Country: None (occurrence: None)
  Receive Date: 20050328
  Receipt Date: 20040930
  Transmission Date: 20051028
  Serious: Yes (Other)
  Sender: FDA-Public Use
  Company Number: PHEH2004US06302

PATIENT
  Age: 42 Year
  Sex: Female

DRUGS (1)
  1. VIVELLE-DOT [Suspect]
     Indication: HORMONE REPLACEMENT THERAPY
     Dosage: 0.05 MG, TWICE WEEKLY, TRANSDERMAL
     Route: 062

REACTIONS (2)
  - DEPRESSION [None]
  - HOT FLUSH [None]
